FAERS Safety Report 7214272-1 (Version None)
Quarter: 2011Q1

REPORT INFORMATION
  Report Type: 
  Country: None (occurrence: None)
  Receive Date: 20110107
  Receipt Date: 20101231
  Transmission Date: 20110831
  Serious: Yes (Other)
  Sender: FDA-Public Use
  Company Number: US-PFIZER INC-2010182537

PATIENT

DRUGS (2)
  1. BEXTRA [Suspect]
     Dosage: UNK
     Dates: start: 20030101
  2. BEXTRA [Suspect]
     Dosage: UNK
     Dates: start: 20040101

REACTIONS (2)
  - MYOCARDIAL INFARCTION [None]
  - RENAL FAILURE [None]
